FAERS Safety Report 22916920 (Version 3)
Quarter: 2023Q4

REPORT INFORMATION
  Report Type: Spontaneous
  Country: US (occurrence: US)
  Receive Date: 20230907
  Receipt Date: 20231201
  Transmission Date: 20240109
  Serious: No
  Sender: FDA-Public Use
  Company Number: US-PFIZER INC-202300294630

PATIENT
  Age: 68 Year
  Sex: Male
  Weight: 83.46 kg

DRUGS (3)
  1. TALZENNA [Suspect]
     Active Substance: TALAZOPARIB TOSYLATE
     Indication: Prostate cancer metastatic
     Dosage: TAKE TWO CAPSULES (0.25MG CAPSULE) DAILY FOR A TOTAL OF 0.5MG A DAY
     Dates: start: 20230811
  2. TALZENNA [Suspect]
     Active Substance: TALAZOPARIB TOSYLATE
     Dosage: 0.25 MG, 2X/DAY
  3. XTANDI [Concomitant]
     Active Substance: ENZALUTAMIDE
     Dosage: UNK
     Dates: start: 20230811

REACTIONS (1)
  - Malaise [Unknown]

NARRATIVE: CASE EVENT DATE: 20230906
